FAERS Safety Report 20306560 (Version 1)
Quarter: 2022Q1

REPORT INFORMATION
  Report Type: Spontaneous
  Country: US (occurrence: US)
  Receive Date: 20220106
  Receipt Date: 20220106
  Transmission Date: 20220424
  Serious: Yes (Other)
  Sender: FDA-Public Use
  Company Number: US-NOVARTISPH-NVSC2021US301091

PATIENT
  Age: 58 Year
  Sex: Male

DRUGS (6)
  1. MYCOPHENOLATE MOFETIL [Suspect]
     Active Substance: MYCOPHENOLATE MOFETIL
     Indication: Ocular pemphigoid
     Dosage: 1500 MG, QD (STARTING REGIMEN AND AT FOLLOW-UP)
     Route: 065
  2. MYCOPHENOLATE MOFETIL [Suspect]
     Active Substance: MYCOPHENOLATE MOFETIL
     Dosage: 1000 MG, QD (AT FOLLOW-UP)
     Route: 065
  3. PREDNISONE [Concomitant]
     Active Substance: PREDNISONE
     Indication: Ocular pemphigoid
     Dosage: 20 MG, QD (STARTING REGIMEN)
     Route: 065
  4. PREDNISONE [Concomitant]
     Active Substance: PREDNISONE
     Dosage: 45 MG, QD (AT FOLLOW-UP)
     Route: 065
  5. PREDNISONE [Concomitant]
     Active Substance: PREDNISONE
     Dosage: 20 MG, QD (AT FOLLOW-UP)
     Route: 065
  6. PREDNISONE [Concomitant]
     Active Substance: PREDNISONE
     Dosage: 15 MG, QD (AT FOLLOW-UP)
     Route: 065

REACTIONS (4)
  - Blindness unilateral [Unknown]
  - Abdominal discomfort [Unknown]
  - Fatigue [Unknown]
  - Product use in unapproved indication [Unknown]
